FAERS Safety Report 9698369 (Version 1)
Quarter: 2013Q4

REPORT INFORMATION
  Report Type: Spontaneous
  Country: US (occurrence: US)
  Receive Date: 20131120
  Receipt Date: 20131120
  Transmission Date: 20140711
  Serious: Yes (Hospitalization)
  Sender: FDA-Public Use
  Company Number: US-MALLINCKRODT-T201304647

PATIENT
  Sex: Male

DRUGS (2)
  1. GABLOFEN [Suspect]
     Indication: MUSCLE SPASTICITY
     Dosage: 274.8 MCG/DAY
     Route: 037
  2. GABLOFEN [Suspect]
     Dosage: 250 MCG/DAY
     Route: 037

REACTIONS (2)
  - Device failure [Recovered/Resolved]
  - Muscle spasticity [Unknown]
